FAERS Safety Report 14524095 (Version 3)
Quarter: 2018Q2

REPORT INFORMATION
  Report Type: Spontaneous
  Country: DK (occurrence: DK)
  Receive Date: 20180213
  Receipt Date: 20180406
  Transmission Date: 20180711
  Serious: Yes (Life-Threatening, Hospitalization, Other)
  Sender: FDA-Public Use
  Company Number: DK-ASTRAZENECA-2018SE15835

PATIENT
  Age: 683 Month
  Sex: Female

DRUGS (4)
  1. PRIMCILLIN [Interacting]
     Active Substance: PENICILLIN V POTASSIUM
     Indication: URINARY TRACT INFECTION
     Route: 065
  2. CRESTOR [Suspect]
     Active Substance: ROSUVASTATIN CALCIUM
     Indication: BLOOD CHOLESTEROL INCREASED
     Route: 048
  3. SULFAMETIZOL [Interacting]
     Active Substance: SULFAMETHIZOLE
     Indication: URINARY TRACT INFECTION
     Route: 065
  4. SELEXID (PEVMECILLINAM HYDROCHLORIDE) [Interacting]
     Active Substance: AMDINOCILLIN PIVOXIL HYDROCHLORIDE
     Indication: URINARY TRACT INFECTION
     Route: 065

REACTIONS (2)
  - Drug interaction [Recovered/Resolved]
  - Anaphylactic shock [Recovered/Resolved]

NARRATIVE: CASE EVENT DATE: 201707
